FAERS Safety Report 20729132 (Version 5)
Quarter: 2022Q2

REPORT INFORMATION
  Report Type: Report from Study
  Country: US (occurrence: US)
  Receive Date: 20220420
  Receipt Date: 20220622
  Transmission Date: 20220721
  Serious: No
  Sender: FDA-Public Use
  Company Number: US-NOVARTISTESTPH-NVSC2022US091331

PATIENT
  Age: 54 Year
  Sex: Female

DRUGS (1)
  1. ENTRESTO [Suspect]
     Active Substance: SACUBITRIL\VALSARTAN
     Indication: Cardiac failure
     Dosage: 1 DOSAGE FORM, BID (49/51 MG HALF TABLET IN AM AND WHOLE TABLET IN PM)
     Route: 048
     Dates: start: 20220415

REACTIONS (4)
  - Muscular weakness [Unknown]
  - Fatigue [Unknown]
  - Headache [Recovered/Resolved]
  - Wrong technique in product usage process [Unknown]

NARRATIVE: CASE EVENT DATE: 20220401
